FAERS Safety Report 9239661 (Version 2)
Quarter: 2013Q2

REPORT INFORMATION
  Report Type: Spontaneous
  Country: NL (occurrence: NL)
  Receive Date: 20130418
  Receipt Date: 20130418
  Transmission Date: 20140414
  Serious: Yes (Other)
  Sender: FDA-Public Use
  Company Number: NL-TEVA-385318ISR

PATIENT
  Age: 82 Year
  Sex: Female
  Weight: 53 kg

DRUGS (4)
  1. METOPROLOLSUCCINAAT RETARD 25 PCH [Suspect]
     Indication: ARRHYTHMIA
     Dosage: 25 MILLIGRAM DAILY;
     Dates: start: 20120823, end: 20120826
  2. OMEPRAZOL 10 MG [Concomitant]
     Indication: NAUSEA
     Route: 048
  3. OMEPRAZOL 10 MG [Concomitant]
     Indication: BILE DUCT STONE
  4. OMEPRAZOL 10 MG [Concomitant]
     Indication: DIAPHRAGMATIC HERNIA

REACTIONS (6)
  - Drug hypersensitivity [Recovered/Resolved with Sequelae]
  - Hearing impaired [Not Recovered/Not Resolved]
  - Parosmia [Not Recovered/Not Resolved]
  - Tinnitus [Not Recovered/Not Resolved]
  - Dysgeusia [Not Recovered/Not Resolved]
  - Hypersensitivity [None]
